FAERS Safety Report 13808187 (Version 3)
Quarter: 2018Q1

REPORT INFORMATION
  Report Type: Report from Study
  Country: US (occurrence: US)
  Receive Date: 20170728
  Receipt Date: 20180117
  Transmission Date: 20180508
  Serious: No
  Sender: FDA-Public Use
  Company Number: US-AMGEN-USASL2017068880

PATIENT
  Age: 62 Year
  Sex: Male

DRUGS (1)
  1. REPATHA [Suspect]
     Active Substance: EVOLOCUMAB
     Indication: HYPERLIPIDAEMIA
     Dosage: 420 MG, QMO
     Route: 065
     Dates: start: 20170501

REACTIONS (6)
  - Influenza like illness [Unknown]
  - Cough [Unknown]
  - Muscle spasms [Unknown]
  - Pain in extremity [Unknown]
  - Muscular weakness [Unknown]
  - Rhinorrhoea [Unknown]
